FAERS Safety Report 5282685-3 (Version None)
Quarter: 2007Q1

REPORT INFORMATION
  Report Type: 
  Country: None (occurrence: None)
  Receive Date: 20061226
  Receipt Date: 20061019
  Transmission Date: 20070707
  Serious: No
  Sender: FDA-Public Use
  Company Number: PHEH2006US13247

PATIENT
  Age: 10 Year
  Sex: Female

DRUGS (5)
  1. ENABLEX [Suspect]
  2. DEPAKOTE [Concomitant]
  3. LAMICTAL [Concomitant]
  4. MACRODANTIN [Concomitant]
  5. MIRALAX [Concomitant]

REACTIONS (1)
  - SALIVARY HYPERSECRETION [None]
